FAERS Safety Report 8951714 (Version 1)
Quarter: 2012Q4

REPORT INFORMATION
  Report Type: 
  Country: US (occurrence: US)
  Receive Date: 20121204
  Receipt Date: 20121204
  Transmission Date: 20130627
  Serious: No
  Sender: FDA-Public Use
  Company Number: US-B.I. PHARMACEUTICALS,INC./RIDGEFIELD-2012-BI-01506BP

PATIENT
  Sex: Male

DRUGS (3)
  1. ZANTAC 150 (RANITIDINE HYDROCHLORIDE) [Suspect]
     Indication: DYSPEPSIA
     Dosage: 300 mg
     Route: 048
  2. ZANTAC 150 (RANITIDINE HYDROCHLORIDE) [Suspect]
     Dosage: 150 mg
     Route: 048
  3. XANAX [Concomitant]
     Indication: ANXIETY
     Dosage: 1 mg

REACTIONS (2)
  - Headache [Not Recovered/Not Resolved]
  - Gastrooesophageal reflux disease [Not Recovered/Not Resolved]
